FAERS Safety Report 4750110-4 (Version None)
Quarter: 2005Q3

REPORT INFORMATION
  Report Type: 
  Country: None (occurrence: None)
  Receive Date: 20050819
  Receipt Date: 20050801
  Transmission Date: 20060218
  Serious: Yes (Death, Other)
  Sender: FDA-Public Use
  Company Number: US_0504116234

PATIENT
  Sex: Male
  Weight: 118 kg

DRUGS (5)
  1. ZYPREXA [Suspect]
     Indication: BIPOLAR DISORDER
     Dates: start: 19990701, end: 20021011
  2. ALTACE [Concomitant]
  3. SEROQUEL [Concomitant]
  4. PAXIL [Concomitant]
  5. CIPRO [Concomitant]

REACTIONS (5)
  - CORONARY ARTERY ATHEROSCLEROSIS [None]
  - DIABETES MELLITUS NON-INSULIN-DEPENDENT [None]
  - HYPERCHOLESTEROLAEMIA [None]
  - HYPERTRIGLYCERIDAEMIA [None]
  - MYOCARDIAL INFARCTION [None]
